FAERS Safety Report 13619417 (Version 1)
Quarter: 2017Q2

REPORT INFORMATION
  Report Type: Spontaneous
  Country: US (occurrence: US)
  Receive Date: 20170606
  Receipt Date: 20170606
  Transmission Date: 20170830
  Serious: No
  Sender: FDA-Public Use
  Company Number: None

PATIENT
  Age: 26 Year
  Sex: Female

DRUGS (1)
  1. INFUSED BODY BUDDERS; INGREDIENT: CBD [Suspect]
     Active Substance: CANNABIDIOL
     Route: 061

REACTIONS (1)
  - Product label confusion [None]

NARRATIVE: CASE EVENT DATE: 20170606
